FAERS Safety Report 6528182-6 (Version None)
Quarter: 2010Q1

REPORT INFORMATION
  Report Type: 
  Country: None (occurrence: None)
  Receive Date: 20100106
  Receipt Date: 20091228
  Transmission Date: 20100710
  Serious: Yes (Other)
  Sender: FDA-Public Use
  Company Number: US-NOVOPROD-300085

PATIENT
  Sex: Male
  Weight: 78.458 kg

DRUGS (8)
  1. NOVOLOG [Suspect]
     Indication: TYPE 1 DIABETES MELLITUS
     Dosage: SLIDING SCALE, PRN
     Route: 058
     Dates: start: 20010101
  2. NOVOLOG [Suspect]
     Dosage: SLIDING SCALE, PRN
     Route: 058
     Dates: start: 20091024, end: 20091026
  3. NOVOLOG [Suspect]
     Dosage: 120 IU, SINGLE
     Route: 058
     Dates: start: 20091027, end: 20091027
  4. DIOVAN                             /01319601/ [Concomitant]
     Indication: HYPERTENSION
     Dosage: UNKNOWN
     Route: 048
  5. HYDROCHLOROTHIAZIDE [Concomitant]
     Indication: HYPERTENSION
     Dosage: UNKNOWN
     Route: 048
  6. GABAPENTIN [Concomitant]
     Indication: RESTLESS LEGS SYNDROME
     Dosage: UNKNOWN
     Route: 048
  7. OMEPRAZOLE [Concomitant]
     Indication: GASTROOESOPHAGEAL REFLUX DISEASE
     Dosage: UNKNOWN
     Route: 048
  8. AVODART [Concomitant]
     Indication: PROSTATIC DISORDER
     Dosage: UNKNOWN
     Route: 048

REACTIONS (5)
  - ACCIDENTAL OVERDOSE [None]
  - BLOOD GLUCOSE INCREASED [None]
  - DRUG INEFFECTIVE [None]
  - DRUG TOXICITY [None]
  - HYPOGLYCAEMIA [None]
